FAERS Safety Report 9912847 (Version 1)
Quarter: 2014Q1

REPORT INFORMATION
  Report Type: Spontaneous
  Country: IN (occurrence: None)
  Receive Date: 20140212
  Receipt Date: 20140212
  Transmission Date: 20141002
  Serious: Yes (Other)
  Sender: FDA-Public Use
  Company Number: AUR-APL-2014-01462

PATIENT
  Age: 48 Year
  Sex: Male

DRUGS (3)
  1. EFAVIRENZ (EFAVIRENZ) [Suspect]
     Indication: ANTIRETROVIRAL THERAPY
  2. LAMIVUDINE [Suspect]
     Indication: ANTIRETROVIRAL THERAPY
  3. ZIDOVUDINE [Suspect]
     Indication: ANTIRETROVIRAL THERAPY

REACTIONS (7)
  - Treatment noncompliance [None]
  - Gynaecomastia [None]
  - Diffuse large B-cell lymphoma [None]
  - Sepsis [None]
  - CD4 lymphocytes decreased [None]
  - Multi-organ failure [None]
  - Performance status decreased [None]
